FAERS Safety Report 20850510 (Version 1)
Quarter: 2022Q2

REPORT INFORMATION
  Report Type: Spontaneous
  Country: GB (occurrence: GB)
  Receive Date: 20220519
  Receipt Date: 20220519
  Transmission Date: 20220721
  Serious: Yes (Other)
  Sender: FDA-Public Use
  Company Number: GB-MHRA-MED-202205110837135350-GRBW9

PATIENT
  Age: 13 Year
  Sex: Female

DRUGS (1)
  1. SERTRALINE [Suspect]
     Active Substance: SERTRALINE HYDROCHLORIDE
     Indication: Anxiety
     Dosage: 150 MILLIGRAM, QD (150MG ONCE DAILY)
     Dates: start: 2021, end: 20220427

REACTIONS (1)
  - Heavy menstrual bleeding [Recovering/Resolving]
